FAERS Safety Report 18691115 (Version 3)
Quarter: 2021Q2

REPORT INFORMATION
  Report Type: Report from Study
  Country: BR (occurrence: BR)
  Receive Date: 20210101
  Receipt Date: 20210601
  Transmission Date: 20210717
  Serious: Yes (Hospitalization)
  Sender: FDA-Public Use
  Company Number: NVSC2020BR343205

PATIENT
  Sex: Female
  Weight: 69 kg

DRUGS (9)
  1. JARDIANCE [Concomitant]
     Active Substance: EMPAGLIFLOZIN
     Indication: PRODUCT USED FOR UNKNOWN INDICATION
     Dosage: 50 MG
     Route: 065
  2. BROMOPRIDE [Concomitant]
     Active Substance: BROMOPRIDE
     Indication: PRODUCT USED FOR UNKNOWN INDICATION
     Dosage: UNK
     Route: 065
  3. PLAMED [Concomitant]
     Indication: PRODUCT USED FOR UNKNOWN INDICATION
     Dosage: UNK
     Route: 065
  4. CANNABIDIOL [Concomitant]
     Active Substance: CANNABIDIOL
     Indication: PRODUCT USED FOR UNKNOWN INDICATION
     Dosage: UNK
     Route: 065
  5. PIQRAY [Suspect]
     Active Substance: ALPELISIB
     Indication: BREAST CANCER METASTATIC
     Dosage: 300 MG
     Route: 065
     Dates: start: 20200826
  6. PIQRAY [Suspect]
     Active Substance: ALPELISIB
     Dosage: 250 MG (AFTER 4 DAYS OF 300MG PIQRAY SUSPENSION)
     Route: 065
     Dates: start: 20201222
  7. KISQALI [Suspect]
     Active Substance: RIBOCICLIB
     Indication: PRODUCT USED FOR UNKNOWN INDICATION
     Dosage: 400 MG, DAILY
     Route: 065
  8. LORATADINA [Suspect]
     Active Substance: LORATADINE
     Indication: HYPERSENSITIVITY
     Dosage: UNK
     Route: 065
  9. PLASIL [Concomitant]
     Active Substance: METOCLOPRAMIDE HYDROCHLORIDE
     Indication: PRODUCT USED FOR UNKNOWN INDICATION
     Dosage: UNK
     Route: 065

REACTIONS (16)
  - Diarrhoea [Recovered/Resolved]
  - Muscle spasms [Not Recovered/Not Resolved]
  - Nausea [Not Recovered/Not Resolved]
  - Colitis [Recovered/Resolved]
  - Skin disorder [Not Recovered/Not Resolved]
  - Ill-defined disorder [Unknown]
  - Vomiting [Not Recovered/Not Resolved]
  - Drug hypersensitivity [Unknown]
  - Vision blurred [Recovered/Resolved]
  - Loss of personal independence in daily activities [Unknown]
  - Hypersensitivity [Recovered/Resolved]
  - Dry skin [Not Recovered/Not Resolved]
  - Blood glucose increased [Recovered/Resolved]
  - Blood glucose abnormal [Not Recovered/Not Resolved]
  - Gastrointestinal inflammation [Not Recovered/Not Resolved]
  - Asthenia [Not Recovered/Not Resolved]
